FAERS Safety Report 10006863 (Version 1)
Quarter: 2014Q1

REPORT INFORMATION
  Report Type: Spontaneous
  Country: US (occurrence: None)
  Receive Date: 20140312
  Receipt Date: 20140312
  Transmission Date: 20141002
  Serious: Yes (Other)
  Sender: FDA-Public Use
  Company Number: None

PATIENT
  Age: 63 Year
  Sex: Female
  Weight: 83.46 kg

DRUGS (1)
  1. DULOXETINE [Suspect]
     Indication: DEPRESSION
     Dosage: 1/DAY ONCE DAILY TAKEN BY MOUTH
     Route: 048
     Dates: start: 20140201, end: 20140308

REACTIONS (3)
  - Glucose tolerance impaired [None]
  - Product substitution issue [None]
  - Glycosylated haemoglobin increased [None]
